FAERS Safety Report 8496768-8 (Version None)
Quarter: 2012Q3

REPORT INFORMATION
  Report Type: 
  Country: None (occurrence: None)
  Receive Date: 20120709
  Receipt Date: 20120626
  Transmission Date: 20120928
  Serious: Yes (Other)
  Sender: FDA-Public Use
  Company Number: US-ROCHE-1084769

PATIENT
  Sex: Male

DRUGS (2)
  1. ACTIVASE [Suspect]
     Indication: THROMBOSIS
     Route: 042
  2. ASPIRIN [Suspect]
     Indication: THROMBOSIS

REACTIONS (4)
  - HEMIPARESIS [None]
  - CEREBRAL HAEMORRHAGE [None]
  - DYSARTHRIA [None]
  - SUPERIOR SAGITTAL SINUS THROMBOSIS [None]
